FAERS Safety Report 8578778-5 (Version None)
Quarter: 2012Q3

REPORT INFORMATION
  Report Type: 
  Country: None (occurrence: None)
  Receive Date: 20120808
  Receipt Date: 20120802
  Transmission Date: 20120928
  Serious: Yes (Hospitalization)
  Sender: FDA-Public Use
  Company Number: FR-BAYER-2012-078876

PATIENT
  Age: 86 Year
  Sex: Female

DRUGS (5)
  1. PERINDOPRIL ERBUMINE [Concomitant]
  2. LASIX [Concomitant]
  3. METOPROLOL TARTRATE [Concomitant]
  4. COUMADIN [Suspect]
     Indication: ATRIAL FIBRILLATION
     Dosage: 4 MG, QD
     Route: 048
     Dates: start: 20120201
  5. CIPROFLOXACIN HYDROCHLORIDE [Interacting]
     Indication: URINARY TRACT INFECTION
     Dosage: UNK
     Route: 048
     Dates: start: 20120406, end: 20120410

REACTIONS (2)
  - RECTAL HAEMORRHAGE [None]
  - INTERNATIONAL NORMALISED RATIO INCREASED [None]
